FAERS Safety Report 17910715 (Version 1)
Quarter: 2020Q2

REPORT INFORMATION
  Report Type: Spontaneous
  Country: US (occurrence: US)
  Receive Date: 20200617
  Receipt Date: 20200617
  Transmission Date: 20200714
  Serious: Yes (Hospitalization)
  Sender: FDA-Public Use
  Company Number: None

PATIENT
  Age: 51 Year
  Sex: Female
  Weight: 59.9 kg

DRUGS (3)
  1. LENALIDOMIDE (CC-5013) [Suspect]
     Active Substance: LENALIDOMIDE
     Dates: end: 20170925
  2. VELCADE [Suspect]
     Active Substance: BORTEZOMIB
     Dates: end: 20170922
  3. DEXAMETHASONE. [Suspect]
     Active Substance: DEXAMETHASONE
     Dates: end: 20171024

REACTIONS (4)
  - Erythema [None]
  - Arthropod bite [None]
  - Cellulitis [None]
  - Swelling [None]

NARRATIVE: CASE EVENT DATE: 20170925
